FAERS Safety Report 7363939-3 (Version None)
Quarter: 2011Q1

REPORT INFORMATION
  Report Type: 
  Country: None (occurrence: None)
  Receive Date: 20110321
  Receipt Date: 20110308
  Transmission Date: 20110831
  Serious: Yes (Death, Hospitalization)
  Sender: FDA-Public Use
  Company Number: US-ACTELION-A-US2010-38453

PATIENT

DRUGS (2)
  1. OXYGEN [Concomitant]
  2. TRACLEER [Suspect]
     Indication: PULMONARY HYPERTENSION
     Dosage: UNK MG, UNK
     Route: 048
     Dates: end: 20100713

REACTIONS (3)
  - OXYGEN CONSUMPTION INCREASED [None]
  - PULMONARY EMBOLISM [None]
  - LUNG DISORDER [None]
